FAERS Safety Report 18222285 (Version 19)
Quarter: 2023Q2

REPORT INFORMATION
  Report Type: Spontaneous
  Country: CA (occurrence: CA)
  Receive Date: 20200902
  Receipt Date: 20230603
  Transmission Date: 20230721
  Serious: Yes (Life-Threatening, Hospitalization, Disabling, Other)
  Sender: FDA-Public Use
  Company Number: None

PATIENT
  Age: 77 Year
  Sex: Female

DRUGS (234)
  1. AMLODIPINE [Suspect]
     Active Substance: AMLODIPINE BESYLATE
     Indication: Hypertension
     Dosage: 1 EVERY 1 DAYS
     Route: 065
  2. OMEPRAZOLE [Suspect]
     Active Substance: OMEPRAZOLE
     Indication: Duodenal ulcer
     Dosage: 1 EVERY 1 DAYS, ALSO 1 EVERY 12 HOURS
     Route: 048
  3. ROSUVASTATIN CALCIUM [Suspect]
     Active Substance: ROSUVASTATIN CALCIUM
     Indication: Cerebrovascular accident
     Dosage: 2 EVERY 1 DAYS
     Route: 048
  4. TELMISARTAN [Suspect]
     Active Substance: TELMISARTAN
     Indication: Product used for unknown indication
  5. AMITRIPTYLINE HYDROCHLORIDE [Suspect]
     Active Substance: AMITRIPTYLINE HYDROCHLORIDE
     Indication: Insomnia
     Dosage: 1 EVERY 1 DAYS
     Route: 065
  6. DILTIAZEM [Suspect]
     Active Substance: DILTIAZEM
     Indication: Hypertension
     Dosage: 1 EVERY 1 DAYS, FILM-COATED TABLET AND
     Route: 065
  7. FUROSEMIDE [Suspect]
     Active Substance: FUROSEMIDE
     Indication: Oedema
     Dosage: 1 EVERY 1 DAYS
     Route: 065
  8. PHENYLEPHRINE HYDROCHLORIDE [Suspect]
     Active Substance: PHENYLEPHRINE HYDROCHLORIDE
     Indication: Pain
  9. LEVOTHYROXINE [Suspect]
     Active Substance: LEVOTHYROXINE
     Indication: Thyroid disorder
     Dosage: 1 EVERY 1 DAY, ALSO RECEIVED 8 MG
     Route: 048
  10. ACEBUTOLOL HYDROCHLORIDE [Suspect]
     Active Substance: ACEBUTOLOL HYDROCHLORIDE
     Indication: Hypertension
     Dosage: 2 EVERY 1 DAYS, ALSO 1 EVERY 12 HOURS
     Route: 065
  11. AMITRIPTYLINE HYDROCHLORIDE [Suspect]
     Active Substance: AMITRIPTYLINE HYDROCHLORIDE
     Indication: Insomnia
     Dosage: 1 EVERY 1 DAYS
     Route: 065
  12. CARBAMAZEPINE [Suspect]
     Active Substance: CARBAMAZEPINE
     Indication: Prophylaxis
     Dosage: 2 EVERY 1 DAYS
     Route: 065
  13. CYCLOBENZAPRINE [Suspect]
     Active Substance: CYCLOBENZAPRINE
     Indication: Fibromyalgia
     Route: 065
  14. DILTIAZEM HYDROCHLORIDE [Suspect]
     Active Substance: DILTIAZEM HYDROCHLORIDE
     Indication: Hypertension
     Dosage: 1 EVERY 1 DAYS
     Route: 042
  15. OXAZEPAM [Suspect]
     Active Substance: OXAZEPAM
     Indication: Insomnia
     Dosage: 1 EVERY 1 DAYS
     Route: 065
  16. ACETAMINOPHEN\CAFFEINE [Suspect]
     Active Substance: ACETAMINOPHEN\CAFFEINE
     Indication: Pain
     Dosage: 1 EVERY 1 DAYS
     Route: 065
  17. CARBAMAZEPINE [Suspect]
     Active Substance: CARBAMAZEPINE
     Indication: Seizure
     Dosage: 2 EVERY 1 DAYS,1 EVERY .5 DAYS AND 1 EVERY 1 DAYS  2 DOSAGE FORM, ALSO 100 MG 1 EVERY 12 HOURS
     Route: 065
  18. CYCLOBENZAPRINE [Suspect]
     Active Substance: CYCLOBENZAPRINE
     Indication: Pain
     Dosage: 2 EVERY 1 DAYS, ALSO 1 EVERY 8 HOURS
     Route: 065
  19. DIPYRIDAMOLE [Suspect]
     Active Substance: DIPYRIDAMOLE
     Indication: Cerebrovascular accident
     Dosage: 1 EVERY 1 DAYS, 1 EVERY .5 DAYS, 5 DOSAGE FORM
     Route: 065
  20. DULCOLAX NOS [Suspect]
     Active Substance: BISACODYL OR DOCUSATE SODIUM
     Indication: Constipation
     Dosage: 1 EVERY 1 DAYS, 1 DF
     Route: 065
  21. GALANTAMINE HYDROBROMIDE [Suspect]
     Active Substance: GALANTAMINE HYDROBROMIDE
     Indication: Dementia
     Dosage: 1 EVERY 1 DAYS, CAPSULE, EXTENDED RELEASE
     Route: 065
  22. GLUCOSAMINE [Suspect]
     Active Substance: GLUCOSAMINE
     Indication: Pain
     Dosage: 1 EVERY 1 DAYS
     Route: 065
  23. NITROGLYCERIN [Suspect]
     Active Substance: NITROGLYCERIN
     Indication: Coronary artery disease
     Dosage: 1 EVERY 1 DAYS
     Route: 065
  24. LACTULOSE [Suspect]
     Active Substance: LACTULOSE
     Indication: Constipation
     Dosage: 1 EVERY 1 DAYS, ALSO ORAL LIQUID
     Route: 048
  25. LEVOFLOXACIN [Suspect]
     Active Substance: LEVOFLOXACIN
     Indication: Urinary tract infection
     Dosage: 1 EVERY 1 DAYS
     Route: 065
  26. MAGNESIUM HYDROXIDE [Suspect]
     Active Substance: MAGNESIUM HYDROXIDE
     Indication: Constipation
     Dosage: 2 EVERY 1 DAYS, ALSO 1 EVERY 12 HOURS
     Route: 065
  27. MORPHINE SULFATE [Suspect]
     Active Substance: MORPHINE SULFATE
     Indication: Pain
     Dosage: 1 EVERY 1 DAYS, 10 MG
     Route: 065
  28. OXAZEPAM [Suspect]
     Active Substance: OXAZEPAM
     Indication: Insomnia
     Dosage: 1 EVERY 1 DAYS, ALSO 1 EVERY 12 HOURS
     Route: 065
  29. QUINAPRIL HYDROCHLORIDE [Suspect]
     Active Substance: QUINAPRIL HYDROCHLORIDE
     Indication: Coronary artery disease
     Dosage: 1 EVERY 1 DAYS
     Route: 065
  30. ALBUTEROL [Suspect]
     Active Substance: ALBUTEROL
     Indication: Hypertension
     Dosage: 1 EVERY 1 DAYS, 1 EVERY 6 HOURS, INHALATION
     Route: 065
  31. TIOTROPIUM BROMIDE [Suspect]
     Active Substance: TIOTROPIUM BROMIDE
     Indication: Chronic obstructive pulmonary disease
     Dosage: 1 EVERY 1 DAYS
     Route: 065
  32. ACETAMINOPHEN [Suspect]
     Active Substance: ACETAMINOPHEN
     Indication: Pain
     Route: 065
  33. ASPIRIN [Suspect]
     Active Substance: ASPIRIN
     Indication: Hypertension
     Dosage: 1 EVERY 12 HOURS
     Route: 048
  34. AGGRENOX [Suspect]
     Active Substance: ASPIRIN\DIPYRIDAMOLE
     Indication: Cerebrovascular accident
     Dosage: 2 EVERY 1 DAYS, CAPSULE IMMEDIATE RELEASE, CAPSULE (EXTENDED RELEASE), 1 EVERY 1 DAYS
     Route: 065
  35. CRANBERRY [Suspect]
     Active Substance: CRANBERRY
     Indication: Bladder disorder
     Dosage: 3 EVERY 1 DAYS, 1 EVERY 8 HOURS
     Route: 065
  36. FUROSEMIDE SODIUM [Suspect]
     Active Substance: FUROSEMIDE SODIUM
     Indication: Oedema
     Dosage: 1 EVERY 1 DAYS
  37. BISACODYL [Suspect]
     Active Substance: BISACODYL
     Indication: Constipation
     Dosage: AS REQUIRED, 1 EVERY 1 DAYS
  38. NITROGLYCERIN [Suspect]
     Active Substance: NITROGLYCERIN
     Indication: Coronary artery disease
     Dosage: 1 EVERY 1 DAYS
  39. SPIRIVA [Suspect]
     Active Substance: TIOTROPIUM BROMIDE MONOHYDRATE
     Indication: Chronic obstructive pulmonary disease
     Dosage: 1 EVERY 1 DAYS
     Route: 048
  40. CRANBERRY [Suspect]
     Active Substance: CRANBERRY
     Indication: Bladder disorder
     Dosage: 3 EVERY 1 DAYS
  41. AMITRIPTYLINE\PERPHENAZINE [Suspect]
     Active Substance: AMITRIPTYLINE\PERPHENAZINE
     Indication: Insomnia
     Dosage: 1 EVERY 1 DAYS
     Route: 065
  42. DIAZEPAM [Suspect]
     Active Substance: DIAZEPAM
     Indication: Insomnia
     Route: 065
  43. EX-LAX REGULAR STRENGTH STIMULANT LAXATIVE [Suspect]
     Active Substance: SENNOSIDES
     Indication: Pain
     Route: 065
  44. QUININE [Suspect]
     Active Substance: QUININE
     Indication: Pain
     Route: 065
  45. SALICYLAMIDE [Suspect]
     Active Substance: SALICYLAMIDE
     Indication: Pain
  46. CRESTOR [Suspect]
     Active Substance: ROSUVASTATIN CALCIUM
     Indication: Cerebrovascular accident
     Dosage: 1 EVERY 1 DAYS
  47. ALUMINUM HYDROXIDE\MAGNESIUM HYDROXIDE [Suspect]
     Active Substance: ALUMINUM HYDROXIDE\MAGNESIUM HYDROXIDE
     Indication: Constipation
     Dosage: 2 EVERY 1 DAYS
     Route: 065
  48. ALBUTEROL\AMBROXOL [Suspect]
     Active Substance: ALBUTEROL\AMBROXOL
     Indication: Product used for unknown indication
     Route: 065
  49. ALBUTEROL\AMBROXOL [Suspect]
     Active Substance: ALBUTEROL\AMBROXOL
     Indication: Product used for unknown indication
     Route: 065
  50. ATROPINE [Suspect]
     Active Substance: ATROPINE
     Indication: Arteriospasm coronary
     Dosage: TOPICAL
  51. CALCIUM CARBONATE [Suspect]
     Active Substance: CALCIUM CARBONATE
     Indication: Product used for unknown indication
  52. GLYCERIN [Suspect]
     Active Substance: GLYCERIN
     Indication: Product used for unknown indication
  53. MORPHINE SULFATE [Suspect]
     Active Substance: MORPHINE SULFATE
     Indication: Pain
     Dosage: 1 EVERY 1 DAYS
     Route: 030
  54. PERSANTINE [Suspect]
     Active Substance: DIPYRIDAMOLE
     Indication: Cerebrovascular accident
     Dosage: 1 EVERY 1 DAYS
  55. POLYSORBATE 80 [Suspect]
     Active Substance: POLYSORBATE 80
     Indication: Insomnia
     Dosage: SOLUTION OPHTHALMIC
  56. POTASSIUM SORBATE [Suspect]
     Active Substance: POTASSIUM SORBATE
     Indication: Product used for unknown indication
  57. ACETAMINOPHEN\ASPIRIN\CAFFEINE [Suspect]
     Active Substance: ACETAMINOPHEN\ASPIRIN\CAFFEINE
     Indication: Product used for unknown indication
  58. OXCARBAZEPINE [Suspect]
     Active Substance: OXCARBAZEPINE
     Indication: Product used for unknown indication
  59. ACETAMINOPHEN AND CODEINE [Suspect]
     Active Substance: ACETAMINOPHEN\CODEINE PHOSPHATE
     Indication: Product used for unknown indication
  60. ALBUTEROL [Suspect]
     Active Substance: ALBUTEROL
     Indication: Product used for unknown indication
  61. HYDROCHLOROTHIAZIDE\QUINAPRIL HYDROCHLORIDE [Suspect]
     Active Substance: HYDROCHLOROTHIAZIDE\QUINAPRIL HYDROCHLORIDE
     Indication: Hypertension
     Dosage: 1 EVERY 1 DAYS
  62. AMLODIPINE BESYLATE [Suspect]
     Active Substance: AMLODIPINE BESYLATE
     Indication: Hypertension
     Route: 065
  63. DILTIAZEM [Suspect]
     Active Substance: DILTIAZEM
     Indication: Hypertension
     Dosage: LIQUID INTRAVENOUS, 1 EVERY 1 DAYS
     Route: 065
  64. AMITRIPTYLINE HYDROCHLORIDE\DIAZEPAM\PERPHENAZINE [Suspect]
     Active Substance: AMITRIPTYLINE HYDROCHLORIDE\DIAZEPAM\PERPHENAZINE
     Indication: Insomnia
     Dosage: 1 EVERY 1 DAYS
  65. SODIUM PICOSULFATE [Suspect]
     Active Substance: SODIUM PICOSULFATE
     Indication: Constipation
     Dosage: 1 EVERY 1 DAYS, POWDER FOR SOLUTION ORAL
  66. DILTIAZEM [Suspect]
     Active Substance: DILTIAZEM
     Indication: Hypertension
     Dosage: LIQUID INTRAVENOUS
  67. PHENOLPHTHALEIN [Suspect]
     Active Substance: PHENOLPHTHALEIN
     Indication: Pain
  68. AMLODIPINE\TELMISARTAN [Suspect]
     Active Substance: AMLODIPINE\TELMISARTAN
     Indication: Hypertension
  69. CAFFEINE [Suspect]
     Active Substance: CAFFEINE
     Indication: Product used for unknown indication
  70. CHONDROITIN SULFATE (BOVINE)\GLUCOSAMINE SULFATE [Suspect]
     Active Substance: CHONDROITIN SULFATE (BOVINE)\GLUCOSAMINE SULFATE
     Indication: Product used for unknown indication
  71. DOCUSATE SODIUM\PHENOLPHTHALEIN [Suspect]
     Active Substance: DOCUSATE SODIUM\PHENOLPHTHALEIN
     Indication: Pain
  72. PERPHENAZINE [Suspect]
     Active Substance: PERPHENAZINE
     Indication: Insomnia
     Dosage: 1 EVERY 1 DAYS
  73. SENNOSIDES [Suspect]
     Active Substance: SENNOSIDES
     Indication: Pain
  74. LEVALBUTEROL [Suspect]
     Active Substance: LEVALBUTEROL
     Indication: Product used for unknown indication
  75. CYCLOBENZAPRINE [Concomitant]
     Active Substance: CYCLOBENZAPRINE
     Indication: Fibromyalgia
     Dosage: 3 EVERY 1 DAYS
  76. CRANBERRY [Concomitant]
     Active Substance: CRANBERRY
     Indication: Bladder disorder
     Dosage: 3 EVERY 1 DAYS
     Route: 065
  77. ASPIRIN\DIPYRIDAMOLE [Concomitant]
     Active Substance: ASPIRIN\DIPYRIDAMOLE
     Indication: Product used for unknown indication
     Route: 065
  78. PLANTAGO SPP. EXTRACT [Concomitant]
     Indication: Constipation
     Dosage: 3 EVERY 1 DAYS
  79. ASPIRIN [Concomitant]
     Active Substance: ASPIRIN
     Indication: Product used for unknown indication
     Route: 048
  80. ACETAMINOPHEN [Concomitant]
     Active Substance: ACETAMINOPHEN
     Indication: Pain
     Dosage: 1 EVERY 1 DAYS
  81. ZINC [Concomitant]
     Active Substance: ZINC
     Indication: Product used for unknown indication
  82. CALCIUM [Concomitant]
     Active Substance: CALCIUM
  83. VITAMIN C [Concomitant]
     Active Substance: ASCORBIC ACID
     Indication: Product used for unknown indication
     Dosage: 1 EVERY 1 DAYS
  84. PYROPHOSPHORIC ACID [Concomitant]
     Active Substance: PYROPHOSPHORIC ACID
  85. SODIUM BENZOATE [Concomitant]
     Active Substance: SODIUM BENZOATE
  86. CRANBERRY [Concomitant]
     Active Substance: CRANBERRY
     Indication: Product used for unknown indication
     Dosage: 1 EVERY 1 DAYS
  87. OXAZEPAM [Concomitant]
     Active Substance: OXAZEPAM
     Indication: Product used for unknown indication
  88. PSYLLIUM HUSK [Concomitant]
     Active Substance: PSYLLIUM HUSK
     Indication: Constipation
  89. FIBER [Concomitant]
     Indication: Product used for unknown indication
  90. PHOSPHORIC ACID SODIUM [Concomitant]
     Indication: Product used for unknown indication
  91. GLYCERIN [Concomitant]
     Active Substance: GLYCERIN
     Indication: Product used for unknown indication
  92. ALBUTEROL [Concomitant]
     Active Substance: ALBUTEROL
  93. ACETAMINOPHEN\ASPIRIN\CAFFEINE [Suspect]
     Active Substance: ACETAMINOPHEN\ASPIRIN\CAFFEINE
     Indication: Product used for unknown indication
  94. ACETAMINOPHEN\CAFFEINE [Concomitant]
     Active Substance: ACETAMINOPHEN\CAFFEINE
  95. FRUCTOSE\GLYCERIN\SODIUM CHLORIDE [Suspect]
     Active Substance: FRUCTOSE\GLYCERIN\SODIUM CHLORIDE
     Indication: Product used for unknown indication
  96. AMITRIPTYLINE HYDROCHLORIDE\PERPHENAZINE [Suspect]
     Active Substance: AMITRIPTYLINE HYDROCHLORIDE\PERPHENAZINE
     Indication: Insomnia
     Dosage: 1 EVERY 1 DAYS
  97. ULIPRISTAL ACETATE [Concomitant]
     Active Substance: ULIPRISTAL ACETATE
     Indication: Product used for unknown indication
  98. HERBALS\PLANTAGO OVATA LEAF [Concomitant]
     Active Substance: HERBALS\PLANTAGO OVATA LEAF
  99. CALCIUM POLYCARBOPHIL [Concomitant]
     Active Substance: CALCIUM POLYCARBOPHIL
  100. POTASSIUM SORBATE [Concomitant]
     Active Substance: POTASSIUM SORBATE
  101. TIOTROPIUM BROMIDE [Concomitant]
     Active Substance: TIOTROPIUM BROMIDE
  102. AMITRIPTYLINE HYDROCHLORIDE [Suspect]
     Active Substance: AMITRIPTYLINE HYDROCHLORIDE
     Indication: Insomnia
     Dosage: 1 EVERY 1 DAYS
     Route: 065
  103. AMITRIPTYLINE HYDROCHLORIDE [Suspect]
     Active Substance: AMITRIPTYLINE HYDROCHLORIDE
     Indication: Insomnia
     Dosage: 1 EVERY 1 DAYS
     Route: 065
  104. NITROGLYCERIN [Suspect]
     Active Substance: NITROGLYCERIN
     Indication: Coronary artery disease
     Dosage: 1 EVERY 1 DAYS
     Route: 065
  105. ACEBUTOLOL HYDROCHLORIDE [Suspect]
     Active Substance: ACEBUTOLOL HYDROCHLORIDE
     Indication: Hypertension
     Dosage: 2 EVERY 1 DAYS, 1 EVERY 12 HOURS
     Route: 065
  106. ACEBUTOLOL HYDROCHLORIDE [Suspect]
     Active Substance: ACEBUTOLOL HYDROCHLORIDE
     Indication: Hypertension
     Dosage: 2 EVERY 1 DAYS, 1 EVERY 12 HOURS
     Route: 065
  107. DILTIAZEM HYDROCHLORIDE [Suspect]
     Active Substance: DILTIAZEM HYDROCHLORIDE
     Indication: Hypertension
     Route: 065
  108. CARBAMAZEPINE [Suspect]
     Active Substance: CARBAMAZEPINE
     Indication: Seizure
     Dosage: 2 EVERY 1 DAYS
     Route: 065
  109. CYCLOBENZAPRINE [Suspect]
     Active Substance: CYCLOBENZAPRINE
     Indication: Pain
     Dosage: 2 EVERY 1 DAYS
     Route: 065
  110. NITROGLYCERIN [Suspect]
     Active Substance: NITROGLYCERIN
     Indication: Coronary artery disease
     Route: 065
  111. NITROGLYCERIN [Suspect]
     Active Substance: NITROGLYCERIN
     Indication: Coronary artery disease
     Dosage: 1 EVERY 1 DAYS, TOPICAL
  112. NITROGLYCERIN [Suspect]
     Active Substance: NITROGLYCERIN
     Indication: Coronary artery disease
  113. MORPHINE SULFATE [Suspect]
     Active Substance: MORPHINE SULFATE
     Indication: Pain
     Route: 065
  114. OXAZEPAM [Suspect]
     Active Substance: OXAZEPAM
     Indication: Insomnia
     Route: 065
  115. QUINAPRIL HYDROCHLORIDE [Suspect]
     Active Substance: QUINAPRIL HYDROCHLORIDE
     Indication: Coronary artery disease
     Dosage: 1 EVERY 1 DAYS
     Route: 065
  116. TIOTROPIUM BROMIDE [Suspect]
     Active Substance: TIOTROPIUM BROMIDE
     Indication: Chronic obstructive pulmonary disease
     Route: 065
  117. ACEBUTOLOL HYDROCHLORIDE [Suspect]
     Active Substance: ACEBUTOLOL HYDROCHLORIDE
     Indication: Hypertension
     Dosage: 2 EVERY 1 DAYS
     Route: 065
  118. ACEBUTOLOL HYDROCHLORIDE [Suspect]
     Active Substance: ACEBUTOLOL HYDROCHLORIDE
     Indication: Hypertension
     Dosage: 1 EVERY 1 DAYS
     Route: 065
  119. AMLODIPINE [Suspect]
     Active Substance: AMLODIPINE BESYLATE
     Indication: Hypertension
     Dosage: 1 EVERY 1 DAYS
     Route: 065
  120. AMLODIPINE [Suspect]
     Active Substance: AMLODIPINE BESYLATE
     Indication: Hypertension
     Dosage: 1 EVERY 1 DAYS
     Route: 065
  121. DILTIAZEM HYDROCHLORIDE [Suspect]
     Active Substance: DILTIAZEM HYDROCHLORIDE
     Indication: Hypertension
     Route: 065
  122. DILTIAZEM HYDROCHLORIDE [Suspect]
     Active Substance: DILTIAZEM HYDROCHLORIDE
     Indication: Hypertension
     Dosage: 1 EVERY 1 DAYS
     Route: 065
  123. NITROGLYCERIN [Suspect]
     Active Substance: NITROGLYCERIN
     Indication: Coronary artery disease
     Dosage: 1 EVERY 1 DAYS
     Route: 065
  124. NITROGLYCERIN [Suspect]
     Active Substance: NITROGLYCERIN
     Indication: Coronary artery disease
     Dosage: 1 EVERY 1 DAYS
     Route: 065
  125. OXAZEPAM [Suspect]
     Active Substance: OXAZEPAM
     Indication: Insomnia
     Route: 065
  126. CYCLOBENZAPRINE [Suspect]
     Active Substance: CYCLOBENZAPRINE
     Indication: Pain
     Dosage: 2 EVERY 1 DAYS
     Route: 065
  127. CYCLOBENZAPRINE [Suspect]
     Active Substance: CYCLOBENZAPRINE
     Indication: Pain
     Dosage: 1 EVERY 1 DAYS
     Route: 065
  128. CYCLOBENZAPRINE [Suspect]
     Active Substance: CYCLOBENZAPRINE
     Indication: Seizure
     Dosage: 3 EVERY 1 DAYS
     Route: 065
  129. FUROSEMIDE [Suspect]
     Active Substance: FUROSEMIDE
     Indication: Oedema
     Dosage: 1 EVERY 1 DAYS
     Route: 065
  130. GLUCOSAMINE [Suspect]
     Active Substance: GLUCOSAMINE
     Indication: Pain
     Dosage: 2 EVERY 1 DAYS
     Route: 065
  131. NITROGLYCERIN [Suspect]
     Active Substance: NITROGLYCERIN
     Indication: Coronary artery disease
     Dosage: 1 EVERY 1 DAYS
  132. NITROGLYCERIN [Suspect]
     Active Substance: NITROGLYCERIN
     Indication: Coronary artery disease
     Dosage: TOPICAL
  133. ROSUVASTATIN CALCIUM [Suspect]
     Active Substance: ROSUVASTATIN CALCIUM
     Indication: Cerebrovascular accident
     Dosage: 2 EVERY 1 DAYS
     Route: 048
  134. ROSUVASTATIN CALCIUM [Suspect]
     Active Substance: ROSUVASTATIN CALCIUM
     Indication: Cerebrovascular accident
     Dosage: 2 EVERY 1 DAYS
     Route: 048
  135. ALBUTEROL [Suspect]
     Active Substance: ALBUTEROL
     Indication: Hypertension
     Dosage: 1 EVERY 1 DAYS
     Route: 065
  136. ALBUTEROL [Suspect]
     Active Substance: ALBUTEROL
     Indication: Hypertension
     Dosage: 4 EVERY 1 DAYS
     Route: 065
  137. ACEBUTOLOL HYDROCHLORIDE [Suspect]
     Active Substance: ACEBUTOLOL HYDROCHLORIDE
     Indication: Hypertension
     Dosage: 1 EVERY 1 DAYS
     Route: 065
  138. CARBAMAZEPINE [Suspect]
     Active Substance: CARBAMAZEPINE
     Indication: Seizure
     Dosage: 1 EVERY 12 HOURS
     Route: 065
  139. CYCLOBENZAPRINE [Suspect]
     Active Substance: CYCLOBENZAPRINE
     Indication: Pain
     Dosage: 1 EVERY 8 HOURS
     Route: 065
  140. CYCLOBENZAPRINE [Suspect]
     Active Substance: CYCLOBENZAPRINE
     Indication: Pain
     Dosage: 1 EVERY 1 DAYS
     Route: 065
  141. GLUCOSAMINE [Suspect]
     Active Substance: GLUCOSAMINE
     Indication: Pain
     Dosage: 1 EVERY 1 DAYS
     Route: 065
  142. AGGRENOX [Suspect]
     Active Substance: ASPIRIN\DIPYRIDAMOLE
     Indication: Cerebrovascular accident
     Dosage: 1 EVERY 1 DAYS, CAPSULE IMMEDIATE RELEASE, CAPSULE (EXTENDED RELEASE)
     Route: 065
  143. CARBAMAZEPINE [Suspect]
     Active Substance: CARBAMAZEPINE
     Indication: Seizure
     Dosage: 1 EVERY 1 DAYS
     Route: 065
  144. CRANBERRY [Suspect]
     Active Substance: CRANBERRY
     Indication: Bladder disorder
     Dosage: 1 EVERY 1 DAYS
  145. LACTULOSE [Suspect]
     Active Substance: LACTULOSE
     Indication: Constipation
     Dosage: 1 EVERY 1 DAYS, AS REQUIRED
     Route: 048
  146. ROSUVASTATIN CALCIUM [Suspect]
     Active Substance: ROSUVASTATIN CALCIUM
     Indication: Cerebrovascular accident
     Dosage: 1 EVERY 1 DAYS
     Route: 048
  147. ALBUTEROL [Suspect]
     Active Substance: ALBUTEROL
     Indication: Hypertension
     Dosage: 1 EVERY 1 DAYS
     Route: 065
  148. CRESTOR [Suspect]
     Active Substance: ROSUVASTATIN CALCIUM
     Indication: Cerebrovascular accident
     Dosage: 1 EVERY 1 DAYS
  149. CARBAMAZEPINE [Suspect]
     Active Substance: CARBAMAZEPINE
     Indication: Prophylaxis
     Dosage: 1 EVERY 1 DAYS
     Route: 065
  150. DILTIAZEM HYDROCHLORIDE [Suspect]
     Active Substance: DILTIAZEM HYDROCHLORIDE
     Indication: Hypertension
     Dosage: 1 EVERY 1 DAYS
     Route: 065
  151. DIPYRIDAMOLE [Suspect]
     Active Substance: DIPYRIDAMOLE
     Indication: Cerebrovascular accident
     Dosage: 1 EVERY 12 HOURS
     Route: 065
  152. ACEBUTOLOL HYDROCHLORIDE [Suspect]
     Active Substance: ACEBUTOLOL HYDROCHLORIDE
     Indication: Product used for unknown indication
     Dosage: 1 EVERY 1 DAYS
  153. GLUCOSAMINE [Suspect]
     Active Substance: GLUCOSAMINE
     Indication: Product used for unknown indication
     Dosage: 1 EVERY 1 DAYS
     Route: 065
  154. NITROGLYCERIN [Suspect]
     Active Substance: NITROGLYCERIN
     Indication: Product used for unknown indication
     Dosage: 1 EVERY 1 DAYS, TOPICAL
  155. ALBUTEROL [Suspect]
     Active Substance: ALBUTEROL
     Indication: Hypertension
     Dosage: 1 EVERY 1 DAYS
  156. AMITRIPTYLINE\PERPHENAZINE [Suspect]
     Active Substance: AMITRIPTYLINE\PERPHENAZINE
     Indication: Insomnia
     Dosage: 1 EVERY 1 DAYS
  157. ACETAMINOPHEN\CAFFEINE [Suspect]
     Active Substance: ACETAMINOPHEN\CAFFEINE
     Indication: Pain
     Dosage: 1 EVERY 1 DAYS
  158. CARBAMAZEPINE [Suspect]
     Active Substance: CARBAMAZEPINE
     Indication: Seizure
     Dosage: 1 EVERY 12 HOURS
     Route: 065
  159. CYCLOBENZAPRINE [Suspect]
     Active Substance: CYCLOBENZAPRINE
     Indication: Pain
     Dosage: 1 EVERY 1 DAYS
  160. CYCLOBENZAPRINE [Suspect]
     Active Substance: CYCLOBENZAPRINE
     Indication: Pain
  161. DILTIAZEM HYDROCHLORIDE [Suspect]
     Active Substance: DILTIAZEM HYDROCHLORIDE
     Indication: Hypertension
     Dosage: 1 EVERY 1 DAYS
  162. DILTIAZEM HYDROCHLORIDE [Suspect]
     Active Substance: DILTIAZEM HYDROCHLORIDE
     Indication: Hypertension
     Dosage: 1 EVERY 1 DAYS
  163. MAGNESIUM HYDROXIDE [Suspect]
     Active Substance: MAGNESIUM HYDROXIDE
     Indication: Constipation
     Dosage: 1 EVERY 1 DAYS
     Route: 065
  164. MORPHINE SULFATE [Suspect]
     Active Substance: MORPHINE SULFATE
     Indication: Product used for unknown indication
     Dosage: 1 EVERY 1 DAYS
     Route: 065
  165. OXAZEPAM [Suspect]
     Active Substance: OXAZEPAM
     Indication: Insomnia
     Dosage: 1 EVERY 1 DAYS
     Route: 048
  166. ALBUTEROL [Suspect]
     Active Substance: ALBUTEROL
     Indication: Hypertension
     Dosage: 1 EVERY 8 HOURS
  167. ACETAMINOPHEN\CAFFEINE [Suspect]
     Active Substance: ACETAMINOPHEN\CAFFEINE
     Indication: Pain
     Dosage: 1 EVERY 1 DAYS
     Route: 065
  168. AGGRENOX [Suspect]
     Active Substance: ASPIRIN\DIPYRIDAMOLE
     Indication: Cerebrovascular accident
  169. CYCLOBENZAPRINE [Suspect]
     Active Substance: CYCLOBENZAPRINE
     Indication: Pain
  170. CYCLOBENZAPRINE [Suspect]
     Active Substance: CYCLOBENZAPRINE
     Indication: Pain
     Dosage: 1 EVERY 1 DAYS
  171. CYCLOBENZAPRINE [Suspect]
     Active Substance: CYCLOBENZAPRINE
     Indication: Fibromyalgia
     Dosage: 1 EVERY 8 HOURS
  172. CYCLOBENZAPRINE [Suspect]
     Active Substance: CYCLOBENZAPRINE
     Dosage: 1 EVERY 1 DAYS
     Route: 065
  173. CRESTOR [Suspect]
     Active Substance: ROSUVASTATIN CALCIUM
     Dosage: 1 EVERY 1 DAYS
     Route: 048
  174. AMITRIPTYLINE\PERPHENAZINE [Suspect]
     Active Substance: AMITRIPTYLINE\PERPHENAZINE
     Indication: Insomnia
     Dosage: 1 EVERY 1 DAYS
     Route: 065
  175. ACETAMINOPHEN\CAFFEINE [Suspect]
     Active Substance: ACETAMINOPHEN\CAFFEINE
     Dosage: 1 EVERY 1 DAYS
     Route: 065
  176. QUINAPRIL HYDROCHLORIDE [Suspect]
     Active Substance: QUINAPRIL HYDROCHLORIDE
     Indication: Hypertension
     Dosage: 4 EVERY 1 DAYS
     Route: 065
  177. PERSANTINE [Suspect]
     Active Substance: DIPYRIDAMOLE
     Indication: Cerebrovascular accident
     Dosage: 1 EVERY 12 HOURS
  178. PERSANTINE [Suspect]
     Active Substance: DIPYRIDAMOLE
     Indication: Cerebrovascular accident
     Dosage: 1 EVERY 12 HOURS
  179. BISACODYL [Suspect]
     Active Substance: BISACODYL
     Indication: Constipation
     Dosage: EVERY 1 DAYS
     Route: 065
  180. DIPYRIDAMOLE [Suspect]
     Active Substance: DIPYRIDAMOLE
     Indication: Cerebrovascular accident
     Dosage: EVERY 1 DAYS
     Route: 065
  181. GLUCOSAMINE [Suspect]
     Active Substance: GLUCOSAMINE
     Indication: Pain
     Dosage: 2 EVERY 1 DAYS
     Route: 065
  182. CYCLOBENZAPRINE [Suspect]
     Active Substance: CYCLOBENZAPRINE
     Indication: Pain
     Route: 065
  183. LEVOFLOXACIN [Suspect]
     Active Substance: LEVOFLOXACIN
     Indication: Urinary tract infection
     Dosage: 1 EVERY 1 DAYS
     Route: 065
  184. MAGNESIUM HYDROXIDE [Suspect]
     Active Substance: MAGNESIUM HYDROXIDE
     Indication: Constipation
     Dosage: 1 EVERY 1 DAYS
     Route: 065
  185. SPIRIVA [Suspect]
     Active Substance: TIOTROPIUM BROMIDE MONOHYDRATE
     Indication: Chronic obstructive pulmonary disease
     Dosage: 1 EVERY 1 DAYS
  186. ROSUVASTATIN CALCIUM [Suspect]
     Active Substance: ROSUVASTATIN CALCIUM
     Indication: Cerebrovascular accident
  187. CYCLOBENZAPRINE [Suspect]
     Active Substance: CYCLOBENZAPRINE
     Indication: Fibromyalgia
     Dosage: EVERY 1 DAYS
     Route: 065
  188. CYCLOBENZAPRINE [Suspect]
     Active Substance: CYCLOBENZAPRINE
     Indication: Pain
     Dosage: 1 EVERY 1 DAYS
     Route: 065
  189. DIPYRIDAMOLE [Suspect]
     Active Substance: DIPYRIDAMOLE
     Indication: Cerebrovascular accident
     Dosage: 1 EVERY 1 DAYS
     Route: 065
  190. LEVOTHYROXINE [Suspect]
     Active Substance: LEVOTHYROXINE
     Indication: Thyroid disorder
     Dosage: 1 EVERY 1 DAY
  191. MORPHINE SULFATE [Suspect]
     Active Substance: MORPHINE SULFATE
     Indication: Pain
     Dosage: 1 EVERY 1 DAYS
     Route: 065
  192. AGGRENOX [Suspect]
     Active Substance: ASPIRIN\DIPYRIDAMOLE
     Indication: Cerebrovascular accident
     Dosage: 1 EVERY .5 DAYS CAPSULE (EXTENDED RELEASE)
     Route: 065
  193. PHENOBARBITAL [Suspect]
     Active Substance: PHENOBARBITAL
     Indication: Arteriospasm coronary
     Dosage: 1 EVERY 1 DAYS
  194. HYDROCHLOROTHIAZIDE\QUINAPRIL HYDROCHLORIDE [Suspect]
     Active Substance: HYDROCHLOROTHIAZIDE\QUINAPRIL HYDROCHLORIDE
     Indication: Hypertension
     Dosage: 1 EVERY 1 DAYS
  195. CARBAMAZEPINE [Suspect]
     Active Substance: CARBAMAZEPINE
     Indication: Seizure
     Dosage: 1 EVERY 1 DAYS
     Route: 065
  196. ACEBUTOLOL HYDROCHLORIDE [Suspect]
     Active Substance: ACEBUTOLOL HYDROCHLORIDE
     Indication: Hypertension
     Dosage: 1 EVERY 4.8 HOURS, 2 EVERY 1 WEEKS, 1 EVERY 5 DAYS
     Route: 065
  197. AGGRENOX [Suspect]
     Active Substance: ASPIRIN\DIPYRIDAMOLE
     Indication: Cerebrovascular accident
     Dosage: 1 EVERY 12 HOURS AND 2 EVERY 1 WEEKS. 1 DOSAGE FORM
     Route: 065
  198. PERSANTINE [Suspect]
     Active Substance: DIPYRIDAMOLE
     Indication: Cerebrovascular accident
     Dosage: 1 EVERY .5 DAYS
  199. DIPYRIDAMOLE [Suspect]
     Active Substance: DIPYRIDAMOLE
     Indication: Cerebrovascular accident
     Dosage: 1 EVERY 1 DAYS
     Route: 065
  200. NITROGLYCERIN [Suspect]
     Active Substance: NITROGLYCERIN
     Indication: Coronary artery disease
     Route: 065
  201. VITAMIN C [Concomitant]
     Active Substance: ASCORBIC ACID
     Indication: Product used for unknown indication
  202. CRANBERRY [Suspect]
     Active Substance: CRANBERRY
     Indication: Bladder disorder
     Dosage: 1 EVERY 1 DAYS
     Route: 065
  203. ACETAMINOPHEN [Suspect]
     Active Substance: ACETAMINOPHEN
     Indication: Pain
     Route: 065
  204. CARBAMAZEPINE [Suspect]
     Active Substance: CARBAMAZEPINE
     Indication: Seizure prophylaxis
     Route: 065
  205. ACETAMINOPHEN [Concomitant]
     Active Substance: ACETAMINOPHEN
     Indication: Pain
  206. FUROSEMIDE [Suspect]
     Active Substance: FUROSEMIDE
     Indication: Oedema
     Dosage: 1 EVERY 1 DAYS
     Route: 065
  207. GALANTAMINE HYDROBROMIDE [Suspect]
     Active Substance: GALANTAMINE HYDROBROMIDE
     Indication: Dementia
     Dosage: 1 EVERY 1 DAYS
     Route: 065
  208. LEVOFLOXACIN [Suspect]
     Active Substance: LEVOFLOXACIN
     Indication: Urinary tract infection
     Route: 065
  209. LEVOFLOXACIN [Suspect]
     Active Substance: LEVOFLOXACIN
     Indication: Urinary tract infection
     Route: 065
  210. LEVOTHYROXINE [Suspect]
     Active Substance: LEVOTHYROXINE
     Indication: Thyroid disorder
     Dosage: 1 EVERY 1 DAY
  211. MAGNESIUM HYDROXIDE [Suspect]
     Active Substance: MAGNESIUM HYDROXIDE
     Indication: Product used for unknown indication
     Route: 065
  212. MAGNESIUM HYDROXIDE [Suspect]
     Active Substance: MAGNESIUM HYDROXIDE
     Indication: Constipation
     Dosage: 2 EVERY 1 DAYS
     Route: 065
  213. MAGNESIUM HYDROXIDE [Suspect]
     Active Substance: MAGNESIUM HYDROXIDE
     Indication: Constipation
     Route: 065
  214. MAGNESIUM HYDROXIDE [Suspect]
     Active Substance: MAGNESIUM HYDROXIDE
     Indication: Constipation
     Route: 065
  215. MORPHINE SULFATE [Suspect]
     Active Substance: MORPHINE SULFATE
     Indication: Pain
     Route: 065
  216. OMEPRAZOLE [Suspect]
     Active Substance: OMEPRAZOLE
     Indication: Duodenal ulcer
  217. NITROGLYCERIN [Suspect]
     Active Substance: NITROGLYCERIN
     Indication: Coronary artery disease
  218. NITROGLYCERIN [Suspect]
     Active Substance: NITROGLYCERIN
     Indication: Coronary artery disease
  219. NITROGLYCERIN [Suspect]
     Active Substance: NITROGLYCERIN
     Indication: Coronary artery disease
  220. PSYLLIUM HUSK [Concomitant]
     Active Substance: PSYLLIUM HUSK
     Indication: Constipation
  221. QUINAPRIL HYDROCHLORIDE [Suspect]
     Active Substance: QUINAPRIL HYDROCHLORIDE
     Indication: Coronary artery disease
     Dosage: 1 EVERY 1 DAYS
     Route: 065
  222. SPIRIVA [Suspect]
     Active Substance: TIOTROPIUM BROMIDE MONOHYDRATE
     Indication: Chronic obstructive pulmonary disease
     Route: 048
  223. CRANBERRY [Suspect]
     Active Substance: CRANBERRY
     Indication: Bladder disorder
     Dosage: 3 EVERY 1 DAYS
     Route: 065
  224. CRANBERRY [Suspect]
     Active Substance: CRANBERRY
     Indication: Bladder disorder
     Dosage: 1 EVERY 8 HOURS
     Route: 065
  225. DILTIAZEM [Suspect]
     Active Substance: DILTIAZEM
     Indication: Hypertension
     Dosage: CAPSULE, SUSTAINED RELEASE
  226. MAGNESIUM HYDROXIDE [Suspect]
     Active Substance: MAGNESIUM HYDROXIDE
     Indication: Constipation
     Dosage: 1 EVERY 24 HOURS
  227. MAGNESIUM HYDROXIDE [Suspect]
     Active Substance: MAGNESIUM HYDROXIDE
     Indication: Constipation
     Dosage: 1 EVERY 24 HOURS
  228. MORPHINE SULFATE [Suspect]
     Active Substance: MORPHINE SULFATE
     Indication: Pain
     Dosage: 10 MG, 20 MG AND FREQUENCY OF 1 EVERY 1 DAYS
     Route: 030
  229. ACETAMINOPHEN [Suspect]
     Active Substance: ACETAMINOPHEN
     Indication: Pain
     Dosage: 1 EVERY 1 DAYS
  230. ALBUTEROL [Suspect]
     Active Substance: ALBUTEROL
     Indication: Product used for unknown indication
     Dosage: 1 EVERY 6 HOURS
  231. CYCLOBENZAPRINE [Suspect]
     Active Substance: CYCLOBENZAPRINE
     Indication: Pain
     Dosage: 1 EVERY 12 HOURS
     Route: 065
  232. CYCLOBENZAPRINE [Suspect]
     Active Substance: CYCLOBENZAPRINE
     Indication: Pain
     Dosage: 1 EVERY 24 HOURS
     Route: 065
  233. AMITRIPTYLINE HYDROCHLORIDE\PERPHENAZINE [Suspect]
     Active Substance: AMITRIPTYLINE HYDROCHLORIDE\PERPHENAZINE
     Indication: Insomnia
     Dosage: 1 EVERY 1 DAYS
  234. DILTIAZEM [Suspect]
     Active Substance: DILTIAZEM
     Indication: Hypertension
     Route: 065

REACTIONS (19)
  - Dyspnoea [Recovered/Resolved]
  - Sedation complication [Recovered/Resolved]
  - Sedation [Recovered/Resolved]
  - Pain [Recovered/Resolved]
  - Orthostatic hypotension [Recovered/Resolved]
  - Mobility decreased [Recovered/Resolved]
  - Hypotension [Recovered/Resolved]
  - Fall [Unknown]
  - Depressed level of consciousness [Recovered/Resolved]
  - Creatinine renal clearance decreased [Recovered/Resolved]
  - Constipation [Recovered/Resolved]
  - Cognitive disorder [Recovered/Resolved]
  - Toxicity to various agents [Unknown]
  - Blood calcium decreased [Recovered/Resolved]
  - Balance disorder [Recovered/Resolved]
  - Drug abuse [Unknown]
  - Overdose [Unknown]
  - Multiple drug therapy [Recovered/Resolved]
  - Drug interaction [Recovered/Resolved]
